FAERS Safety Report 24065688 (Version 1)
Quarter: 2024Q3

REPORT INFORMATION
  Report Type: Spontaneous
  Country: US (occurrence: US)
  Receive Date: 20240709
  Receipt Date: 20240709
  Transmission Date: 20241016
  Serious: Yes (Hospitalization)
  Sender: AMERICAN REGENT
  Company Number: US-AMERICAN REGENT INC-2024002601

PATIENT
  Age: 62 Year
  Sex: Male

DRUGS (1)
  1. EPINEPHRINE [Suspect]
     Active Substance: EPINEPHRINE
     Indication: Haemostasis
     Dosage: 10 MILLILITER
     Route: 058

REACTIONS (4)
  - Multi-organ disorder [Recovered/Resolved]
  - Pulmonary oedema [Recovered/Resolved]
  - Accidental overdose [Recovered/Resolved]
  - Product use in unapproved indication [Recovered/Resolved]
